FAERS Safety Report 7506813-1 (Version None)
Quarter: 2011Q2

REPORT INFORMATION
  Report Type: 
  Country: None (occurrence: None)
  Receive Date: 20110526
  Receipt Date: 20110518
  Transmission Date: 20111010
  Serious: Yes (Other)
  Sender: FDA-Public Use
  Company Number: A0927849A

PATIENT
  Age: 53 Year
  Sex: Female

DRUGS (7)
  1. IMITREX [Suspect]
     Indication: MIGRAINE PROPHYLAXIS
     Dosage: 100MG VARIABLE DOSE
     Route: 048
     Dates: start: 19991101
  2. LUNESTA [Concomitant]
  3. EFFEXOR XR [Concomitant]
  4. ACIPHEX [Concomitant]
  5. BENICAR [Concomitant]
  6. AMERGE [Suspect]
     Indication: MIGRAINE PROPHYLAXIS
     Dosage: .25MG VARIABLE DOSE
     Route: 048
     Dates: start: 19991101
  7. INSULIN [Concomitant]

REACTIONS (2)
  - PLATELET ADHESIVENESS INCREASED [None]
  - THROMBOCYTOPENIA [None]
